FAERS Safety Report 6387141-7 (Version None)
Quarter: 2009Q4

REPORT INFORMATION
  Report Type: 
  Country: None (occurrence: None)
  Receive Date: 20091002
  Receipt Date: 20090922
  Transmission Date: 20100525
  Serious: Yes (Death, Other)
  Sender: FDA-Public Use
  Company Number: US-SANOFI-SYNTHELABO-A03200904371

PATIENT
  Age: 85 Year
  Sex: Female

DRUGS (2)
  1. SORBITOL [Suspect]
     Indication: HYPERKALAEMIA
     Dosage: UNK
     Route: 048
  2. KAYEXALATE [Suspect]
     Indication: HYPERKALAEMIA
     Route: 048

REACTIONS (1)
  - GASTROINTESTINAL NECROSIS [None]
